FAERS Safety Report 16577255 (Version 2)
Quarter: 2019Q3

REPORT INFORMATION
  Report Type: Spontaneous
  Country: US (occurrence: US)
  Receive Date: 20190716
  Receipt Date: 20190803
  Transmission Date: 20191004
  Serious: Yes (Hospitalization, Other)
  Sender: FDA-Public Use
  Company Number: US-AUROBINDO-AUR-APL-2019-039651

PATIENT

DRUGS (5)
  1. CISPLATIN. [Suspect]
     Active Substance: CISPLATIN
     Indication: CHEMOTHERAPY
     Dosage: UNK
     Route: 065
  2. 5-FLUOROURACIL [Suspect]
     Active Substance: FLUOROURACIL
     Indication: CHEMOTHERAPY
     Dosage: UNK
     Route: 065
  3. CARBOPLATIN. [Suspect]
     Active Substance: CARBOPLATIN
     Indication: CHEMOTHERAPY
     Dosage: UNK
     Route: 065
  4. PEMBROLIZUMAB. [Suspect]
     Active Substance: PEMBROLIZUMAB
     Indication: PRODUCT USED FOR UNKNOWN INDICATION
     Dosage: UNK
     Route: 065
  5. COBICISTAT;ELVITEGRAVIR;EMTRICITABINE;TENOFOVIR ALAFENAMIDE [Concomitant]
     Indication: ANTIRETROVIRAL THERAPY
     Dosage: UNK
     Route: 065

REACTIONS (20)
  - Toxicity to various agents [Unknown]
  - Pelvic abscess [Unknown]
  - Urinary retention [Unknown]
  - Pyrexia [Unknown]
  - Hydronephrosis [Unknown]
  - Pseudomonas infection [Recovered/Resolved]
  - Lymph node abscess [Recovering/Resolving]
  - Peripheral swelling [Unknown]
  - Hypokinesia [Unknown]
  - Anaemia [Unknown]
  - Hyponatraemia [Unknown]
  - Urinary tract infection [Unknown]
  - Leukocytosis [Unknown]
  - Hypochloraemia [Unknown]
  - CD4 lymphocytes decreased [Unknown]
  - Dysuria [Recovered/Resolved]
  - Bacterial infection [Unknown]
  - Tachycardia [Unknown]
  - Pain in extremity [Unknown]
  - Oedema [Unknown]
